FAERS Safety Report 5398675-6 (Version None)
Quarter: 2007Q3

REPORT INFORMATION
  Report Type: 
  Country: None (occurrence: None)
  Receive Date: 20070726
  Receipt Date: 20061205
  Transmission Date: 20080115
  Serious: No
  Sender: FDA-Public Use
  Company Number: US-AMGEN-KDL202996

PATIENT
  Sex: Male
  Weight: 70.4 kg

DRUGS (4)
  1. PROCRIT [Suspect]
     Indication: RENAL FAILURE CHRONIC
     Dates: start: 20061001
  2. THYROID TAB [Concomitant]
  3. NALTREXONE [Concomitant]
  4. NORVASC [Concomitant]

REACTIONS (3)
  - HYPERSOMNIA [None]
  - INCONTINENCE [None]
  - MUSCULAR WEAKNESS [None]
